FAERS Safety Report 14996109 (Version 2)
Quarter: 2018Q2

REPORT INFORMATION
  Report Type: Report from Study
  Country: US (occurrence: US)
  Receive Date: 20180611
  Receipt Date: 20180613
  Transmission Date: 20180711
  Serious: No
  Sender: FDA-Public Use
  Company Number: US-JAZZ-2018-US-007384

PATIENT
  Sex: Female

DRUGS (15)
  1. IBUPROFEN. [Concomitant]
     Active Substance: IBUPROFEN
  2. XYREM [Suspect]
     Active Substance: SODIUM OXYBATE
     Indication: CATAPLEXY
     Dosage: 3.5 G, BID
     Route: 048
     Dates: start: 201804
  3. MAGNESIUM CITRATE. [Concomitant]
     Active Substance: MAGNESIUM CITRATE
  4. NORCO [Concomitant]
     Active Substance: ACETAMINOPHEN\HYDROCODONE BITARTRATE
  5. MELATONIN [Concomitant]
     Active Substance: MELATONIN
  6. FIORICET [Concomitant]
     Active Substance: ACETAMINOPHEN\BUTALBITAL\CAFFEINE
  7. VITAMIN C [Concomitant]
     Active Substance: ASCORBIC ACID
  8. KLONOPIN [Concomitant]
     Active Substance: CLONAZEPAM
  9. AMBIEN [Concomitant]
     Active Substance: ZOLPIDEM TARTRATE
  10. NUVIGIL [Concomitant]
     Active Substance: ARMODAFINIL
  11. XYREM [Suspect]
     Active Substance: SODIUM OXYBATE
     Indication: NARCOLEPSY
     Dosage: 3 G, BID
     Route: 048
     Dates: start: 201803, end: 201804
  12. CYMBALTA [Concomitant]
     Active Substance: DULOXETINE HYDROCHLORIDE
  13. ADDERALL [Concomitant]
     Active Substance: AMPHETAMINE ASPARTATE\AMPHETAMINE SULFATE\DEXTROAMPHETAMINE SACCHARATE\DEXTROAMPHETAMINE SULFATE
  14. MODAFINIL. [Concomitant]
     Active Substance: MODAFINIL
  15. LOESTRIN NOS [Concomitant]
     Active Substance: ETHINYL ESTRADIOL\NORETHINDRONE ACETATE

REACTIONS (6)
  - Anxiety [Not Recovered/Not Resolved]
  - Panic attack [Unknown]
  - Blood pressure increased [Not Recovered/Not Resolved]
  - Nausea [Not Recovered/Not Resolved]
  - Heart rate increased [Not Recovered/Not Resolved]
  - Fatigue [Not Recovered/Not Resolved]

NARRATIVE: CASE EVENT DATE: 2018
